FAERS Safety Report 19230570 (Version 1)
Quarter: 2021Q2

REPORT INFORMATION
  Report Type: Spontaneous
  Country: ES (occurrence: ES)
  Receive Date: 20210507
  Receipt Date: 20210507
  Transmission Date: 20210717
  Serious: Yes (Other)
  Sender: FDA-Public Use
  Company Number: ES-ACCORD-224323

PATIENT
  Age: 54 Year
  Sex: Male

DRUGS (1)
  1. CARBOPLATIN. [Suspect]
     Active Substance: CARBOPLATIN
     Indication: PRODUCT USED FOR UNKNOWN INDICATION
     Route: 042
     Dates: start: 20210210, end: 20210210

REACTIONS (3)
  - Eye pruritus [Unknown]
  - Hypoxia [Unknown]
  - Flushing [Unknown]

NARRATIVE: CASE EVENT DATE: 20210210
